FAERS Safety Report 23108383 (Version 2)
Quarter: 2023Q4

REPORT INFORMATION
  Report Type: Report from Study
  Country: US (occurrence: US)
  Receive Date: 20231026
  Receipt Date: 20231113
  Transmission Date: 20240109
  Serious: Yes (Other)
  Sender: FDA-Public Use
  Company Number: US-Merck Healthcare KGaA-2023482630

PATIENT
  Age: 57 Year
  Sex: Female

DRUGS (1)
  1. MAVENCLAD [Suspect]
     Active Substance: CLADRIBINE
     Indication: Multiple sclerosis
     Dosage: YEAR ONE MONTH ONE THERAPY: 2 TABLETS ON DAY 1 TO 2 AND 1 TABLET ON DAY 3 TO 5
     Route: 048
     Dates: start: 20231012, end: 20231016

REACTIONS (10)
  - Myocardial infarction [Unknown]
  - Chest pain [Recovered/Resolved]
  - Abdominal pain upper [Recovered/Resolved]
  - Dyspepsia [Unknown]
  - Paraesthesia [Unknown]
  - Facial discomfort [Unknown]
  - Tearfulness [Unknown]
  - Hypoaesthesia [Unknown]
  - Asthenia [Unknown]
  - Fatigue [Unknown]

NARRATIVE: CASE EVENT DATE: 20231013
